FAERS Safety Report 15536304 (Version 1)
Quarter: 2018Q4

REPORT INFORMATION
  Report Type: Spontaneous
  Country: US (occurrence: US)
  Receive Date: 20181021
  Receipt Date: 20181021
  Transmission Date: 20190205
  Serious: No
  Sender: FDA-Public Use
  Company Number: None

PATIENT
  Age: 41 Year
  Sex: Female
  Weight: 90 kg

DRUGS (14)
  1. KLONOPIN [Concomitant]
     Active Substance: CLONAZEPAM
  2. GUANFACINE. [Concomitant]
     Active Substance: GUANFACINE
  3. VITAMIN B COMPLEX [Concomitant]
     Active Substance: CYANOCOBALAMIN\DEXPANTHENOL\NIACINAMIDE\PYRIDOXINE HYDROCHLORIDE\RIBOFLAVIN 5^-PHOSPHATE SODIUM\THIAMINE HYDROCHLORIDE\VITAMIN B COMPLEX
  4. MAGNESIUM CITRATE. [Concomitant]
     Active Substance: MAGNESIUM CITRATE
  5. TUMERIC [Concomitant]
     Active Substance: HERBALS\TURMERIC
  6. PHENERGAN [Concomitant]
     Active Substance: PROMETHAZINE HYDROCHLORIDE
  7. COQ10 [Concomitant]
     Active Substance: UBIDECARENONE
  8. PROZAC [Concomitant]
     Active Substance: FLUOXETINE HYDROCHLORIDE
  9. OXYCODONE [Concomitant]
     Active Substance: OXYCODONE
  10. ZOFRAN [Concomitant]
     Active Substance: ONDANSETRON HYDROCHLORIDE
  11. COREG [Concomitant]
     Active Substance: CARVEDILOL
  12. OLIVE OIL CAPSULES [Concomitant]
  13. AIMOVIG [Suspect]
     Active Substance: ERENUMAB-AOOE
     Indication: HEMIPLEGIC MIGRAINE
     Dosage: ?          QUANTITY:2 INJECTION(S);OTHER FREQUENCY:ONCE A MONTH;?
     Route: 058
     Dates: start: 20180924
  14. ASHWAGHANDA [Concomitant]

REACTIONS (15)
  - Feeling abnormal [None]
  - Constipation [None]
  - Vomiting [None]
  - Muscular weakness [None]
  - Anxiety [None]
  - Nausea [None]
  - Fatigue [None]
  - Agitation [None]
  - Palpitations [None]
  - Pruritus generalised [None]
  - Confusional state [None]
  - Tachycardia [None]
  - Injection site pruritus [None]
  - Dizziness [None]
  - Blood pressure increased [None]

NARRATIVE: CASE EVENT DATE: 20180925
